FAERS Safety Report 4990278-8 (Version None)
Quarter: 2006Q2

REPORT INFORMATION
  Report Type: 
  Country: None (occurrence: None)
  Receive Date: 20060503
  Receipt Date: 20060410
  Transmission Date: 20061013
  Serious: Yes (Hospitalization, Other)
  Sender: FDA-Public Use
  Company Number: RO-GLAXOSMITHKLINE-B0421288A

PATIENT
  Sex: Male

DRUGS (1)
  1. AVODART [Suspect]
     Indication: BENIGN PROSTATIC HYPERPLASIA
     Dosage: 1TAB PER DAY
     Route: 065
     Dates: start: 20050101, end: 20050101

REACTIONS (4)
  - DERMATITIS [None]
  - DERMATITIS ALLERGIC [None]
  - SKIN LESION [None]
  - SKIN NECROSIS [None]
